FAERS Safety Report 8461198 (Version 2)
Quarter: 2013Q1

REPORT INFORMATION
  Report Type: Spontaneous
  Country: US (occurrence: US)
  Receive Date: 20120315
  Receipt Date: 20130107
  Transmission Date: 20140127
  Serious: Yes (Other)
  Sender: FDA-Public Use
  Company Number: US-ROCHE-794369

PATIENT
  Sex: Female
  Weight: 65.83 kg

DRUGS (2)
  1. ACCUTANE [Suspect]
     Indication: PRODUCT USED FOR UNKNOWN INDICATION
     Route: 048
  2. ACCUTANE [Suspect]
     Route: 048
     Dates: start: 20000622, end: 20001106

REACTIONS (3)
  - Inflammatory bowel disease [Unknown]
  - Colitis ulcerative [Unknown]
  - Bipolar disorder [Unknown]
